FAERS Safety Report 8261646 (Version 4)
Quarter: 2020Q3

REPORT INFORMATION
  Report Type: Report from Study
  Country: PL (occurrence: PL)
  Receive Date: 20111123
  Receipt Date: 20131017
  Transmission Date: 20201104
  Serious: Yes (Death, Hospitalization)
  Sender: FDA-Public Use
  Company Number: PL-JNJFOC-20101209078

PATIENT
  Age: 59 Year
  Sex: Male
  Weight: 82 kg

DRUGS (23)
  1. BARALGINA [Concomitant]
     Route: 065
  2. ASAMAX [Concomitant]
     Indication: COLITIS ULCERATIVE
     Route: 048
  3. KETOCONAZOLE. [Concomitant]
     Active Substance: KETOCONAZOLE
     Route: 048
  4. INDAPAMIDE. [Concomitant]
     Active Substance: INDAPAMIDE
     Route: 048
  5. ISOSORBIDE. [Concomitant]
     Active Substance: ISOSORBIDE
     Route: 048
  6. RIFINAH [Concomitant]
     Active Substance: ISONIAZID\RIFAMPIN
     Route: 048
  7. IPRATROPIUM BROMIDE. [Concomitant]
     Active Substance: IPRATROPIUM BROMIDE
     Route: 048
  8. ENCORTON [Concomitant]
     Active Substance: PREDNISONE
     Indication: COLITIS ULCERATIVE
     Route: 048
     Dates: start: 20100305
  9. EFFOX [Concomitant]
     Active Substance: ISOSORBIDE MONONITRATE
     Route: 048
  10. CEFTRIAXONE. [Concomitant]
     Active Substance: CEFTRIAXONE
     Route: 065
  11. ETHAMBUTOL [Concomitant]
     Active Substance: ETHAMBUTOL HYDROCHLORIDE
     Route: 048
  12. AZATHIOPRIN [Concomitant]
     Active Substance: AZATHIOPRINE
     Indication: COLITIS ULCERATIVE
     Route: 048
     Dates: start: 201001
  13. RANITIDINE. [Concomitant]
     Active Substance: RANITIDINE
     Route: 065
  14. MIDAZOLAM HYDROCHLORIDE. [Concomitant]
     Active Substance: MIDAZOLAM HYDROCHLORIDE
     Route: 042
  15. GLYCERYL TRINITRATE [Concomitant]
     Active Substance: NITROGLYCERIN
     Route: 042
  16. GOLIMUMAB [Suspect]
     Active Substance: GOLIMUMAB
     Indication: COLITIS ULCERATIVE
     Route: 058
     Dates: start: 20100507
  17. ELECTROLYTE SOLUTIONS [Concomitant]
     Route: 065
  18. GOLIMUMAB [Suspect]
     Active Substance: GOLIMUMAB
     Indication: COLITIS ULCERATIVE
     Route: 058
     Dates: start: 20100618, end: 20101203
  19. NIDRAZID [Concomitant]
     Active Substance: ISONIAZID
     Route: 048
     Dates: start: 20100507
  20. OMEPRAZOLE. [Concomitant]
     Active Substance: OMEPRAZOLE
     Route: 065
  21. AMIKACIN. [Concomitant]
     Active Substance: AMIKACIN
     Route: 065
  22. IMIPENEM AND CILASTATIN [Concomitant]
     Active Substance: CILASTATIN SODIUM\IMIPENEM
     Route: 065
  23. SULFASALAZINE. [Concomitant]
     Active Substance: SULFASALAZINE
     Route: 048

REACTIONS (1)
  - Disseminated tuberculosis [Fatal]

NARRATIVE: CASE EVENT DATE: 20101213
